FAERS Safety Report 7796876-0 (Version None)
Quarter: 2011Q4

REPORT INFORMATION
  Report Type: 
  Country: None (occurrence: None)
  Receive Date: 20111003
  Receipt Date: 20110920
  Transmission Date: 20120403
  Serious: Yes (Hospitalization, Other)
  Sender: FDA-Public Use
  Company Number: CIP11001752

PATIENT
  Age: 68 Year
  Sex: Female

DRUGS (30)
  1. HYDROCODONE W/APAP (HYDROCODONE, PARACETAMOL) [Concomitant]
  2. ESTRADERM [Concomitant]
  3. CEPHALEXIN [Concomitant]
  4. AZITHROMYCIN [Concomitant]
  5. VOLTAREN [Concomitant]
  6. SPIRIVA [Concomitant]
  7. MYLANTA (ALIMINIUM HYDROXIDE, MAGNESIUM HYDROXIDE) [Concomitant]
  8. ACTONEL [Suspect]
     Dosage: 35 MG ONCE WEEKLY, ORAL
     Route: 048
     Dates: start: 20080212
  9. NAPROXEN [Concomitant]
  10. PROAIR HFA (SALBUTAMOL SULFATE) [Concomitant]
  11. FLUCONAZOLE [Concomitant]
  12. FUROSEMIDE [Concomitant]
  13. CHERATUSSIN AC (CODEINE, GUAIFENESIN) [Concomitant]
  14. DILAUDID [Concomitant]
  15. ATENOLOL [Concomitant]
  16. CARISOPRODOL [Concomitant]
  17. COLACE (DOCUSATE SODIUM) [Concomitant]
  18. CLOBETASOL PROPIONATE [Concomitant]
  19. VENTOLIN HFA (SALBUTAMOL SULFATE) [Concomitant]
  20. TERBINAFINE HCL [Concomitant]
  21. ALDARA [Concomitant]
  22. CLARITIN [Concomitant]
  23. PANTOPRAZOLE [Concomitant]
  24. AMOXICILLIN [Concomitant]
  25. DIPHENOXYLATE W/ATROPINE SULFATE (ATROPINE SULFATE, DIPHENOXYLATE) [Concomitant]
  26. ACETAMINOPHEN [Concomitant]
  27. CELEBREX [Concomitant]
  28. ADAVIR (FLUTICASONE PROPIONATE, SALMETEROL XINAFOATE) [Concomitant]
  29. SIMVASTATIN [Concomitant]
  30. POTASSIUM CHLORIDE [Concomitant]

REACTIONS (8)
  - FRACTURE DISPLACEMENT [None]
  - PAIN IN EXTREMITY [None]
  - LIMB DEFORMITY [None]
  - FEMUR FRACTURE [None]
  - FALL [None]
  - ANAEMIA POSTOPERATIVE [None]
  - LIMB ASYMMETRY [None]
  - GAIT DISTURBANCE [None]
